FAERS Safety Report 8676536 (Version 3)
Quarter: 2014Q2

REPORT INFORMATION
  Report Type: Spontaneous
  Country: JP (occurrence: JP)
  Receive Date: 20120720
  Receipt Date: 20140523
  Transmission Date: 20141212
  Serious: Yes (Hospitalization, Other)
  Sender: FDA-Public Use
  Company Number: JP-009507513-1102USA03334

PATIENT
  Age: 74 Year
  Sex: Male

DRUGS (13)
  1. BONALON [Suspect]
     Indication: OSTEOPOROSIS
     Dosage: 35 MG, QW
     Route: 048
     Dates: end: 20110216
  2. BAYASPIRIN [Suspect]
     Indication: CEREBRAL INFARCTION
     Route: 048
     Dates: end: 20110216
  3. RABEPRAZOLE SODIUM [Concomitant]
     Indication: GASTROOESOPHAGEAL REFLUX DISEASE
     Route: 048
     Dates: end: 20110216
  4. LOCHOL (FLUVASTATIN SODIUM) [Concomitant]
     Indication: LIPID METABOLISM DISORDER
     Route: 048
     Dates: end: 20110216
  5. AVOLVE [Concomitant]
     Indication: BENIGN PROSTATIC HYPERPLASIA
     Route: 048
     Dates: end: 20110216
  6. SINEMET [Concomitant]
     Indication: PARKINSONISM
     Route: 048
     Dates: end: 20110216
  7. MAOREAD [Concomitant]
     Indication: HYPERTENSION
     Route: 048
     Dates: end: 20110216
  8. URIEF [Concomitant]
     Indication: BENIGN PROSTATIC HYPERPLASIA
     Route: 048
     Dates: end: 20110216
  9. SELEGILINE HYDROCHLORIDE [Concomitant]
     Indication: PARKINSONISM
     Route: 048
     Dates: end: 20110216
  10. AKINETON TABLETS [Concomitant]
     Route: 048
     Dates: end: 20110216
  11. MYSLEE [Concomitant]
     Indication: INSOMNIA
     Route: 048
     Dates: end: 20110216
  12. SEDEKOPAN [Concomitant]
     Indication: INSOMNIA
     Route: 048
     Dates: end: 20110216
  13. MICAMLO [Concomitant]
     Indication: HYPERTENSION
     Route: 048
     Dates: end: 20110216

REACTIONS (3)
  - Necrotising oesophagitis [Recovered/Resolved with Sequelae]
  - Haemorrhagic anaemia [Recovered/Resolved]
  - Duodenal ulcer [Recovering/Resolving]
